FAERS Safety Report 5718536-X (Version None)
Quarter: 2008Q2

REPORT INFORMATION
  Report Type: 
  Country: None (occurrence: None)
  Receive Date: 20080425
  Receipt Date: 20080415
  Transmission Date: 20081010
  Serious: Yes (Other)
  Sender: FDA-Public Use
  Company Number: CA-PFIZER INC-2008017481

PATIENT
  Sex: Female
  Weight: 115.7 kg

DRUGS (3)
  1. CHAMPIX [Suspect]
     Indication: SMOKING CESSATION THERAPY
     Route: 048
     Dates: start: 20080118, end: 20080206
  2. AMITRIPTYLINE HCL [Concomitant]
     Dosage: DAILY DOSE:25MG-TEXT:AT BEDTIME
     Route: 048
  3. METHOTREXATE [Concomitant]
     Dosage: TEXT:2.5 MG ONCE WEEKLY
     Route: 048

REACTIONS (5)
  - ABNORMAL DREAMS [None]
  - ANGER [None]
  - CRYING [None]
  - DEPRESSION [None]
  - SUICIDAL IDEATION [None]
